FAERS Safety Report 11351083 (Version 1)
Quarter: 2015Q3

REPORT INFORMATION
  Report Type: Spontaneous
  Country: US (occurrence: None)
  Receive Date: 20150709
  Receipt Date: 20150709
  Transmission Date: 20151125
  Serious: Yes (Other)
  Sender: FDA-Public Use
  Company Number: PHEH2014US017396

PATIENT
  Age: 76 Year
  Sex: Female

DRUGS (7)
  1. ASPIRIN (ACETYLSALICYLIC ACID) [Concomitant]
     Active Substance: ASPIRIN
  2. SUTENT [Concomitant]
     Active Substance: SUNITINIB MALATE
  3. VITAMIN  VITAMIN D3 (COLECALCIFEROL) [Concomitant]
  4. IMATINIB (IMATINIB) UNKNOWN [Suspect]
     Active Substance: IMATINIB
     Indication: PRODUCT USED FOR UNKNOWN INDICATION
  5. ALDACTONE [Concomitant]
     Active Substance: SPIRONOLACTONE
  6. DEMECLOCYCLINE [Concomitant]
     Active Substance: DEMECLOCYCLINE
  7. KEPPRA [Concomitant]
     Active Substance: LEVETIRACETAM

REACTIONS (6)
  - Body temperature decreased [None]
  - Hypersensitivity [None]
  - Asthenia [None]
  - Heart rate decreased [None]
  - Muscle disorder [None]
  - Blood pressure increased [None]

NARRATIVE: CASE EVENT DATE: 20140716
